FAERS Safety Report 7825965-7 (Version None)
Quarter: 2011Q4

REPORT INFORMATION
  Report Type: 
  Country: None (occurrence: None)
  Receive Date: 20111019
  Receipt Date: 20111010
  Transmission Date: 20120403
  Serious: Yes (Hospitalization)
  Sender: FDA-Public Use
  Company Number: US-ASTRAZENECA-2011SE48630

PATIENT
  Sex: Male
  Weight: 110.2 kg

DRUGS (11)
  1. SIMVASTATIN [Concomitant]
  2. QUININE [Concomitant]
  3. TRIAMTERENE AND HYDROCHLOROTHIAZIDE [Concomitant]
  4. METFORMIN HCL [Concomitant]
  5. ALLOPURINOL [Concomitant]
  6. NAPROXEN [Concomitant]
  7. ACTOS [Concomitant]
  8. NIFEDICAL [Concomitant]
  9. CRESTOR [Suspect]
     Indication: HYPERLIPIDAEMIA
     Route: 048
     Dates: start: 20110728, end: 20110808
  10. GLIPIZIDE [Concomitant]
  11. TRICOR [Concomitant]

REACTIONS (1)
  - PSEUDOANGINA [None]
